FAERS Safety Report 6736159-0 (Version None)
Quarter: 2010Q2

REPORT INFORMATION
  Report Type: 
  Country: None (occurrence: None)
  Receive Date: 20100521
  Receipt Date: 20100429
  Transmission Date: 20101027
  Serious: Yes (Death, Other)
  Sender: FDA-Public Use
  Company Number: IT-ROCHE-701395

PATIENT
  Sex: Male
  Weight: 0.8 kg

DRUGS (7)
  1. ENFUVIRTIDE [Suspect]
     Indication: HEPATITIS C
     Dosage: ANOTHER INDICATION: HIV INFECTION
     Route: 064
  2. STAVUDINE [Suspect]
     Indication: HEPATITIS C
     Dosage: ANOTHER INDICATION: HIV INFECTION
     Route: 064
  3. TENOFOVIR [Suspect]
     Indication: HEPATITIS C
     Dosage: ANOTHER INDICATION: HIV INFECTION
     Route: 064
  4. RITONAVIR [Suspect]
     Indication: HEPATITIS C
     Dosage: ANOTHER INDICATION: HIV INFECTION
     Route: 064
  5. TIPRANAVIR [Suspect]
     Indication: HEPATITIS C
     Dosage: ANOTHER INDICATION: HIV INFECTION
     Route: 064
  6. ZIDOVUDINE [Suspect]
     Indication: HEPATITIS C
     Dosage: ANOTHER INDICATION: HIV INFECTION
  7. LAMIVUDINE [Suspect]
     Indication: HEPATITIS C
     Dosage: ANOTHER INDICATION: HIV INFECTION

REACTIONS (6)
  - ACUTE RESPIRATORY DISTRESS SYNDROME [None]
  - DEATH [None]
  - HYPERGLYCAEMIA [None]
  - NECROTISING COLITIS [None]
  - PREMATURE BABY [None]
  - SMALL INTESTINAL PERFORATION [None]
